FAERS Safety Report 9837119 (Version 2)
Quarter: 2014Q1

REPORT INFORMATION
  Report Type: Spontaneous
  Country: IT (occurrence: IT)
  Receive Date: 20140123
  Receipt Date: 20140226
  Transmission Date: 20141002
  Serious: Yes (Hospitalization)
  Sender: FDA-Public Use
  Company Number: IT-AMGEN-ITASP2014004269

PATIENT
  Age: 72 Year
  Sex: Male

DRUGS (15)
  1. VECTIBIX [Suspect]
     Indication: COLON CANCER METASTATIC
     Dosage: 6 MG/KG, CYCLICAL
     Route: 042
     Dates: start: 20131018, end: 20131216
  2. PANTORC [Concomitant]
     Dosage: 20 MG, 2 POSOLOGIC UNITS
     Route: 048
  3. NOVORAPID [Concomitant]
     Dosage: 44 IU (LESS THAN 100), UNK
     Route: 058
  4. METFORAL [Concomitant]
     Dosage: 850 MG, 3 POSOLOGIC UNITS
     Route: 048
  5. PLAVIX [Concomitant]
     Dosage: 75 MG, 1 POSOLOGIC UNITS, UNK
     Route: 048
  6. LASIX                              /00032601/ [Concomitant]
     Dosage: 25 MG, 4 POSOLOGIC UNITS, UNK
     Route: 048
  7. NITRAKET [Concomitant]
     Dosage: 10 MG/24H, 1 POSOLOGIC UNIT, UNK
     Route: 062
  8. SELOKEN                            /00376902/ [Concomitant]
     Dosage: 100 MG, 1,5 POSOLOGIC UNIT, UNK
     Route: 048
  9. ALDACTONE                          /00006201/ [Concomitant]
     Dosage: 25 MG, 1 POSOLOGIC UNIT, UNK
     Route: 048
  10. NORVASC [Concomitant]
     Dosage: 10 MG, UNK
     Route: 048
  11. SIVASTIN [Concomitant]
     Dosage: 40 MG, 1 POSOLOGIC UNIT, UNK
     Route: 048
  12. NAPRILENE [Concomitant]
     Dosage: 20 MG, UNK
     Route: 048
  13. LEVEMIR [Concomitant]
     Dosage: 28 IU (LESS THAN 100), UNK
     Route: 058
  14. FLIXOTIDE [Concomitant]
     Dosage: 250 MCG, UNK
  15. SPIRIVA [Concomitant]
     Dosage: 18 MCG, UNK

REACTIONS (3)
  - Face oedema [Recovered/Resolved]
  - Skin exfoliation [Recovered/Resolved]
  - Oedema peripheral [Recovered/Resolved]
